FAERS Safety Report 23269444 (Version 1)
Quarter: 2023Q4

REPORT INFORMATION
  Report Type: Spontaneous
  Country: JP (occurrence: JP)
  Receive Date: 20231207
  Receipt Date: 20231207
  Transmission Date: 20240110
  Serious: Yes (Hospitalization)
  Sender: FDA-Public Use
  Company Number: JP-VIIV HEALTHCARE LIMITED-JP2023JPN169229

PATIENT

DRUGS (5)
  1. JULUCA [Suspect]
     Active Substance: DOLUTEGRAVIR SODIUM\RILPIVIRINE HYDROCHLORIDE
     Indication: Acquired immunodeficiency syndrome
     Dosage: UNK
  2. REYATAZ [Concomitant]
     Active Substance: ATAZANAVIR SULFATE
     Indication: Acquired immunodeficiency syndrome
     Dosage: UNK
  3. RETROVIR [Concomitant]
     Active Substance: ZIDOVUDINE
     Indication: Acquired immunodeficiency syndrome
     Dosage: UNK
  4. EPIVIR [Concomitant]
     Active Substance: LAMIVUDINE
     Indication: Acquired immunodeficiency syndrome
     Dosage: UNK
  5. BIKTARVY [Concomitant]
     Active Substance: BICTEGRAVIR SODIUM\EMTRICITABINE\TENOFOVIR ALAFENAMIDE FUMARATE
     Indication: Acquired immunodeficiency syndrome
     Dosage: UNK

REACTIONS (2)
  - COVID-19 [Recovered/Resolved]
  - Pyrexia [Unknown]
